FAERS Safety Report 8593964-6 (Version None)
Quarter: 2012Q3

REPORT INFORMATION
  Report Type: 
  Country: None (occurrence: None)
  Receive Date: 20120814
  Receipt Date: 20120812
  Transmission Date: 20120928
  Serious: Yes (Other)
  Sender: FDA-Public Use
  Company Number: CA-PFIZER INC-2012197325

PATIENT
  Sex: Male

DRUGS (1)
  1. VARENICLINE [Suspect]
     Dosage: UNK

REACTIONS (3)
  - DEPRESSION [None]
  - NEGATIVE THOUGHTS [None]
  - ANXIETY [None]
